FAERS Safety Report 19666823 (Version 1)
Quarter: 2021Q3

REPORT INFORMATION
  Report Type: Spontaneous
  Country: GB (occurrence: GB)
  Receive Date: 20210806
  Receipt Date: 20210806
  Transmission Date: 20211014
  Serious: Yes (Life-Threatening, Disabling, Other)
  Sender: FDA-Public Use
  Company Number: GB-TEVA-2021-GB-1938813

PATIENT
  Age: 46 Year
  Sex: Female
  Weight: 78.92 kg

DRUGS (3)
  1. QVAR [Suspect]
     Active Substance: BECLOMETHASONE DIPROPIONATE
     Indication: ASTHMA
     Dosage: 100 1 PUFF TWICE A DAY FROM 18/01/21 TO 07/04/21 THEN 06/04/21 TO 06/05/21 TWO PUFFS TWICE A DAY
     Route: 055
     Dates: start: 20210118, end: 20210506
  2. THYROXINE [Concomitant]
     Active Substance: LEVOTHYROXINE
  3. ASPIRIN COATED [Concomitant]
     Active Substance: ASPIRIN

REACTIONS (4)
  - Visual impairment [Not Recovered/Not Resolved]
  - Intraocular pressure increased [Not Recovered/Not Resolved]
  - Migraine [Unknown]
  - Ocular hypertension [Not Recovered/Not Resolved]

NARRATIVE: CASE EVENT DATE: 20210330
